FAERS Safety Report 7976218-8 (Version None)
Quarter: 2011Q4

REPORT INFORMATION
  Report Type: 
  Country: None (occurrence: None)
  Receive Date: 20111213
  Receipt Date: 20111014
  Transmission Date: 20120403
  Serious: No
  Sender: FDA-Public Use
  Company Number: US-AMGEN-USASP2011053200

PATIENT
  Age: 53 Year
  Sex: Male

DRUGS (2)
  1. ENBREL [Suspect]
     Indication: RHEUMATOID ARTHRITIS
     Dosage: 50 MG, QWK
     Dates: start: 20111006
  2. TREXALL [Concomitant]
     Dosage: 1 MG, UNK
     Dates: start: 20110628

REACTIONS (6)
  - FATIGUE [None]
  - INJECTION SITE HAEMORRHAGE [None]
  - SOMNOLENCE [None]
  - INJECTION SITE PAIN [None]
  - HYPERSOMNIA [None]
  - INDIFFERENCE [None]
